FAERS Safety Report 14420537 (Version 1)
Quarter: 2018Q1

REPORT INFORMATION
  Report Type: Spontaneous
  Country: US (occurrence: US)
  Receive Date: 20180122
  Receipt Date: 20180122
  Transmission Date: 20180509
  Serious: No
  Sender: FDA-Public Use
  Company Number: US-ROCHE-1990263

PATIENT
  Sex: Male

DRUGS (3)
  1. RITUXAN [Suspect]
     Active Substance: RITUXIMAB
     Indication: B-CELL LYMPHOMA STAGE IV
     Dosage: GIVEN 6 CYCLES WITH BENDAMUSTINE
     Route: 042
     Dates: start: 201607, end: 201612
  2. RITUXAN [Suspect]
     Active Substance: RITUXIMAB
     Dosage: 2 CYCLES OF MAINTENANCE DOSE
     Route: 042
  3. BENDAMUSTINE [Concomitant]
     Active Substance: BENDAMUSTINE
     Indication: B-CELL LYMPHOMA STAGE IV
     Dosage: GIVEN 6 CYCLES WITH RITUXIMAB
     Route: 042
     Dates: start: 201607, end: 201612

REACTIONS (1)
  - Neutropenia [Not Recovered/Not Resolved]
